FAERS Safety Report 4385539-X (Version None)
Quarter: 2004Q2

REPORT INFORMATION
  Report Type: 
  Country: None (occurrence: None)
  Receive Date: 20040625
  Receipt Date: 20040625
  Transmission Date: 20050107
  Serious: No
  Sender: FDA-Public Use
  Company Number: None

PATIENT
  Age: 42 Year
  Sex: Female
  Weight: 69.8539 kg

DRUGS (2)
  1. ENOXAPARIN SODIUM [Suspect]
     Indication: DEEP VEIN THROMBOSIS
     Dosage: 70 MG 12 H SQ
     Route: 058
     Dates: start: 20040302, end: 20040307
  2. WARFARIN SODIUM [Suspect]
     Dosage: 10 MG PO
     Route: 048
     Dates: start: 20040301, end: 20040302

REACTIONS (3)
  - DYSPNOEA [None]
  - MEDIASTINAL HAEMATOMA [None]
  - POST PROCEDURAL HAEMATOMA [None]
